FAERS Safety Report 13267819 (Version 1)
Quarter: 2017Q1

REPORT INFORMATION
  Report Type: Spontaneous
  Country: KR (occurrence: KR)
  Receive Date: 20170224
  Receipt Date: 20170224
  Transmission Date: 20170428
  Serious: Yes (Hospitalization, Other)
  Sender: FDA-Public Use
  Company Number: KR-009507513-1702KOR009845

PATIENT
  Age: 70 Year
  Sex: Male
  Weight: 68 kg

DRUGS (14)
  1. CENTRUM (MINERALS (UNSPECIFIED) (+) VITAMINS (UNSPECIFIED)) [Concomitant]
     Indication: VITAMIN SUPPLEMENTATION
     Dosage: 1 TABLET, QD
     Route: 048
     Dates: start: 20161110, end: 20170117
  2. DIABEX [Concomitant]
     Active Substance: METFORMIN HYDROCHLORIDE
  3. CISPLAN [Concomitant]
     Active Substance: CISPLATIN
     Indication: RECTAL CANCER
     Dosage: STRENGTH: 50MG/100ML, 105 MG, ONCE
     Dates: start: 20161110, end: 20161110
  4. SANCUSO [Concomitant]
     Active Substance: GRANISETRON
     Indication: PROPHYLAXIS OF NAUSEA AND VOMITING
     Dosage: PRESENTATION: 8.2X66.6 MM2, 1 DF (REPORTED AS EA), QD
     Dates: start: 20161109, end: 20161115
  5. CAMPTO [Concomitant]
     Active Substance: IRINOTECAN
     Indication: RECTAL CANCER
     Dosage: 123 MG, ONCE
     Route: 042
     Dates: start: 20161110, end: 20161110
  6. EMEND (FOSAPREPITANT DIMEGLUMINE) [Suspect]
     Active Substance: FOSAPREPITANT DIMEGLUMINE
     Indication: PROPHYLAXIS OF NAUSEA AND VOMITING
     Dosage: 150 MG, ONCE
     Route: 042
     Dates: start: 20161110, end: 20161110
  7. EMEND (FOSAPREPITANT DIMEGLUMINE) [Suspect]
     Active Substance: FOSAPREPITANT DIMEGLUMINE
     Dosage: 150 MG, ONCE
     Route: 042
     Dates: start: 20161208, end: 20161208
  8. EMEND (FOSAPREPITANT DIMEGLUMINE) [Suspect]
     Active Substance: FOSAPREPITANT DIMEGLUMINE
     Dosage: 150 MG, ONCE
     Route: 042
     Dates: start: 20161229, end: 20161229
  9. DEXAMETHASONE. [Concomitant]
     Active Substance: DEXAMETHASONE
     Indication: PROPHYLAXIS OF NAUSEA AND VOMITING
     Dosage: 4 MG, BID
     Route: 048
     Dates: start: 20161111, end: 20161113
  10. LAXIS [Concomitant]
     Indication: PROPHYLAXIS
     Dosage: STRENGH: 20MG/2ML, 20 MG, ONCE
     Route: 042
     Dates: start: 20161110, end: 20161110
  11. DEXAMETHASONE YUHAN [Concomitant]
     Indication: PROPHYLAXIS OF NAUSEA AND VOMITING
     Dosage: STRENGTH: 5MG/ML, ONCE
     Route: 042
     Dates: start: 20161110, end: 20161110
  12. STILNOXCR [Concomitant]
     Indication: INSOMNIA
     Dosage: DOSE: 6.25 MG, ONCE
     Route: 048
     Dates: start: 20161110, end: 20161110
  13. CURAN [Concomitant]
     Active Substance: RANITIDINE HYDROCHLORIDE
     Indication: PROPHYLAXIS
     Dosage: 4 MG, BID
     Route: 048
     Dates: start: 20161111, end: 20161113
  14. CURAN [Concomitant]
     Active Substance: RANITIDINE HYDROCHLORIDE
     Indication: PROPHYLAXIS
     Dosage: STRENGHT: 50MG/2ML, DOSE: 50 MG, ONCE
     Route: 042
     Dates: start: 20161110, end: 20161110

REACTIONS (5)
  - Neutropenia [Recovered/Resolved]
  - Neutropenia [Recovered/Resolved]
  - Gastroenteritis [Recovered/Resolved]
  - Hyperkalaemia [Recovered/Resolved]
  - Nasopharyngitis [Recovered/Resolved]

NARRATIVE: CASE EVENT DATE: 20161114
